FAERS Safety Report 5241153-5 (Version None)
Quarter: 2007Q1

REPORT INFORMATION
  Report Type: 
  Country: None (occurrence: None)
  Receive Date: 20070215
  Receipt Date: 20070215
  Transmission Date: 20070707
  Serious: No
  Sender: FDA-Public Use
  Company Number: None

PATIENT
  Sex: Male
  Weight: 68.0396 kg

DRUGS (1)
  1. WELLBUTRIN XL [Suspect]
     Indication: DRUG INEFFECTIVE
     Dosage: 1 PILL DAY PO
     Route: 048
     Dates: start: 20070120, end: 20070214

REACTIONS (7)
  - ANXIETY [None]
  - DRUG EFFECT DECREASED [None]
  - IMPAIRED WORK ABILITY [None]
  - NIGHTMARE [None]
  - PHARMACEUTICAL PRODUCT COMPLAINT [None]
  - SUICIDAL IDEATION [None]
  - WEIGHT INCREASED [None]
